FAERS Safety Report 19662078 (Version 1)
Quarter: 2021Q3

REPORT INFORMATION
  Report Type: Report from Study
  Country: HK (occurrence: HK)
  Receive Date: 20210805
  Receipt Date: 20210805
  Transmission Date: 20211014
  Serious: Yes (Other)
  Sender: FDA-Public Use
  Company Number: HK-TEVA-2021-HK-1938224

PATIENT
  Age: 40 Year
  Sex: Female

DRUGS (3)
  1. PROPRANOLOL [Suspect]
     Active Substance: PROPRANOLOL HYDROCHLORIDE
     Indication: DRUG THERAPY
     Route: 065
  2. TIRATRICOL [Suspect]
     Active Substance: TIRATRICOL
     Indication: DRUG THERAPY
     Route: 065
  3. SIBUTRAMINE [Suspect]
     Active Substance: SIBUTRAMINE
     Indication: DRUG THERAPY
     Route: 065

REACTIONS (5)
  - Brain injury [Unknown]
  - Toxicity to various agents [Unknown]
  - Off label use [Unknown]
  - Cardiac arrest [Unknown]
  - Intentional product misuse [Unknown]
